FAERS Safety Report 23743377 (Version 1)
Quarter: 2024Q2

REPORT INFORMATION
  Report Type: Spontaneous
  Country: US (occurrence: US)
  Receive Date: 20240415
  Receipt Date: 20240415
  Transmission Date: 20240715
  Serious: Yes (Life-Threatening, Hospitalization, Other)
  Sender: FDA-Public Use
  Company Number: None

PATIENT
  Age: 26 Year
  Sex: Female

DRUGS (2)
  1. CLOZAPINE [Suspect]
     Active Substance: CLOZAPINE
     Indication: Hallucination, auditory
  2. CLOZAPINE [Suspect]
     Active Substance: CLOZAPINE
     Dosage: DOSE INCREASE 1 WEEK PRIOR

REACTIONS (1)
  - Myocarditis [Recovered/Resolved]
